FAERS Safety Report 9387102 (Version 1)
Quarter: 2013Q3

REPORT INFORMATION
  Report Type: Spontaneous
  Country: LK (occurrence: LK)
  Receive Date: 20130708
  Receipt Date: 20130708
  Transmission Date: 20140515
  Serious: Yes (Hospitalization)
  Sender: FDA-Public Use
  Company Number: PHHY2013LK068016

PATIENT
  Age: 6 Year
  Sex: Female
  Weight: 27 kg

DRUGS (5)
  1. VALPROIC ACID [Suspect]
     Indication: COMPLEX PARTIAL SEIZURES
     Dosage: 20 MG/KG, UNK
  2. ACETYLCYSTEINE [Suspect]
  3. L CARNITINE [Suspect]
     Dosage: 100MG/KG LOADING DOSE
     Route: 042
  4. L CARNITINE [Suspect]
     Dosage: 50 MG/KG, UNK
     Route: 042
  5. L CARNITINE [Suspect]
     Route: 048

REACTIONS (19)
  - Posterior reversible encephalopathy syndrome [Recovered/Resolved]
  - Pyrexia [Recovered/Resolved]
  - Decreased appetite [Recovered/Resolved]
  - Vomiting [Recovered/Resolved]
  - Rash erythematous [Recovered/Resolved]
  - Hepatomegaly [Recovered/Resolved]
  - Malaise [Recovered/Resolved]
  - Gallbladder enlargement [Recovered/Resolved]
  - Hepatotoxicity [Recovered/Resolved]
  - General physical health deterioration [Recovered/Resolved]
  - Hepatic encephalopathy [Recovered/Resolved]
  - Acute hepatic failure [Recovered/Resolved]
  - Coma [Recovered/Resolved]
  - Blood pressure increased [Recovered/Resolved]
  - Altered state of consciousness [Recovered/Resolved]
  - Clonic convulsion [Recovered/Resolved]
  - Visual impairment [Recovered/Resolved]
  - Headache [Recovered/Resolved]
  - Chapped lips [Recovered/Resolved]
